FAERS Safety Report 19510692 (Version 2)
Quarter: 2022Q2

REPORT INFORMATION
  Report Type: Report from Study
  Country: US (occurrence: US)
  Receive Date: 20210708
  Receipt Date: 20220407
  Transmission Date: 20220720
  Serious: Yes (Other)
  Sender: FDA-Public Use
  Company Number: US-ABBVIE-21K-163-3977109-00

PATIENT
  Sex: Female

DRUGS (3)
  1. CREON [Suspect]
     Active Substance: PANCRELIPASE AMYLASE\PANCRELIPASE LIPASE\PANCRELIPASE PROTEASE
     Indication: Product used for unknown indication
     Dosage: 7 TO 8 CAPSULES PER DAY. 2 WITH MEALS 1 WITH SNACK, DEPENDS ON QUANTITY OF FOOD TAKEN
     Route: 048
     Dates: start: 2019, end: 201912
  2. CREON [Suspect]
     Active Substance: PANCRELIPASE AMYLASE\PANCRELIPASE LIPASE\PANCRELIPASE PROTEASE
     Dosage: 7 TO 8 CAPSULES PER DAY. 2 WITH MEALS 1 WITH SNACK, DEPENDS ON QUANTITY OF FOOD EATS
     Route: 048
     Dates: start: 20210630
  3. PALONOSETRON [Concomitant]
     Active Substance: PALONOSETRON
     Indication: Product used for unknown indication

REACTIONS (3)
  - Pancreatic carcinoma recurrent [Recovered/Resolved]
  - Neuropathy peripheral [Unknown]
  - Diarrhoea [Recovered/Resolved]

NARRATIVE: CASE EVENT DATE: 20190101
